FAERS Safety Report 16366115 (Version 1)
Quarter: 2019Q2

REPORT INFORMATION
  Report Type: Spontaneous
  Country: AR (occurrence: AR)
  Receive Date: 20190529
  Receipt Date: 20190529
  Transmission Date: 20190711
  Serious: Yes (Other)
  Sender: FDA-Public Use
  Company Number: AR-JNJFOC-20190533640

PATIENT
  Age: 87 Year
  Sex: Female

DRUGS (2)
  1. HALOPIDOL (HALOPERIDOL) [Suspect]
     Active Substance: HALOPERIDOL
     Indication: PRODUCT USED FOR UNKNOWN INDICATION
     Route: 065
  2. PROPANOL [Suspect]
     Active Substance: PROPRANOLOL HYDROCHLORIDE
     Indication: PRODUCT USED FOR UNKNOWN INDICATION
     Route: 065

REACTIONS (21)
  - Gait disturbance [Unknown]
  - Choking sensation [Unknown]
  - Ocular hyperaemia [Unknown]
  - Pain [Unknown]
  - Condition aggravated [Unknown]
  - Poisoning [Unknown]
  - Nail injury [Unknown]
  - Product dose omission [Unknown]
  - Mobility decreased [Unknown]
  - Malaise [Unknown]
  - Back pain [Unknown]
  - Pruritus [Unknown]
  - Productive cough [Unknown]
  - Muscle atrophy [Unknown]
  - Tachycardia [Unknown]
  - Dry mouth [Unknown]
  - Blister [Unknown]
  - Chest pain [Unknown]
  - Renal pain [Unknown]
  - Depressed mood [Unknown]
  - Fatigue [Unknown]
